FAERS Safety Report 10507766 (Version 1)
Quarter: 2014Q4

REPORT INFORMATION
  Report Type: Spontaneous
  Country: US (occurrence: None)
  Receive Date: 20141008
  Receipt Date: 20141008
  Transmission Date: 20150528
  Serious: Yes (Other)
  Sender: FDA-Public Use
  Company Number: None

PATIENT
  Age: 56 Year
  Sex: Female
  Weight: 63.5 kg

DRUGS (1)
  1. POVIDONE IODINE [Suspect]
     Active Substance: POVIDONE-IODINE
     Indication: KNEE ARTHROPLASTY
     Route: 061
     Dates: start: 20141001, end: 20141004

REACTIONS (1)
  - Blister [None]

NARRATIVE: CASE EVENT DATE: 20141004
